FAERS Safety Report 17179358 (Version 1)
Quarter: 2019Q4

REPORT INFORMATION
  Report Type: Spontaneous
  Country: FR (occurrence: FR)
  Receive Date: 20191219
  Receipt Date: 20191219
  Transmission Date: 20200122
  Serious: Yes (Other)
  Sender: FDA-Public Use
  Company Number: FR-ELI_LILLY_AND_COMPANY-FR201912004643

PATIENT
  Age: 76 Year
  Sex: Female
  Weight: 71 kg

DRUGS (6)
  1. CACIT [CALCIUM CARBONATE] [Concomitant]
     Active Substance: CALCIUM CARBONATE
  2. STAGID [Concomitant]
     Active Substance: METFORMIN PAMOATE
  3. TRULICITY [Suspect]
     Active Substance: DULAGLUTIDE
     Indication: TYPE 2 DIABETES MELLITUS
     Route: 058
     Dates: start: 20190429, end: 20191030
  4. PRAVASTATIN SODIUM. [Concomitant]
     Active Substance: PRAVASTATIN SODIUM
  5. DEDROGYL [Concomitant]
     Active Substance: CALCIFEDIOL
  6. TRIATEC [RAMIPRIL] [Concomitant]
     Active Substance: RAMIPRIL

REACTIONS (3)
  - Bronchitis [Recovering/Resolving]
  - Injection site nodule [Recovered/Resolved]
  - Injection site erythema [Recovered/Resolved]

NARRATIVE: CASE EVENT DATE: 201904
